FAERS Safety Report 5180947-1 (Version None)
Quarter: 2006Q4

REPORT INFORMATION
  Report Type: 
  Country: None (occurrence: None)
  Receive Date: 20061214
  Receipt Date: 20061214
  Transmission Date: 20070319
  Serious: Yes (Hospitalization)
  Sender: FDA-Public Use
  Company Number: None

PATIENT
  Sex: Male
  Weight: 22.9 kg

DRUGS (3)
  1. CYTARABINE [Suspect]
     Dosage: 21360 MG
  2. ELSPAR [Suspect]
     Dosage: 10680 UNIT
  3. DIGOXIN [Concomitant]

REACTIONS (14)
  - ABDOMINAL PAIN [None]
  - BLOOD PRESSURE DECREASED [None]
  - CLOSTRIDIAL INFECTION [None]
  - DIARRHOEA [None]
  - DYSPNOEA [None]
  - ESCHERICHIA SEPSIS [None]
  - FLUSHING [None]
  - GENERAL PHYSICAL HEALTH DETERIORATION [None]
  - HYPOKALAEMIA [None]
  - PANCYTOPENIA [None]
  - PYREXIA [None]
  - RESPIRATORY DISTRESS [None]
  - RESUSCITATION [None]
  - VOMITING [None]
